FAERS Safety Report 22660533 (Version 1)
Quarter: 2023Q2

REPORT INFORMATION
  Report Type: Spontaneous
  Country: US (occurrence: None)
  Receive Date: 20230630
  Receipt Date: 20230630
  Transmission Date: 20230721
  Serious: Yes (Death)
  Sender: FDA-Public Use
  Company Number: None

PATIENT
  Sex: Male

DRUGS (2)
  1. GEMCITABINE HCL [Suspect]
     Active Substance: GEMCITABINE HYDROCHLORIDE
     Indication: Pancreatic carcinoma
     Dosage: 1700 MG IV??GEMCITABINE AND ABRAXANE FREQUENCY:  ON DAYS 1,8AND 15 OF 21DAY CYCLE.???
     Route: 042
     Dates: start: 202306
  2. ABRAXANE [Suspect]
     Active Substance: PACLITAXEL
     Dosage: GEMCITABINE AND ABRAXANE FREQUENCY:  ON DAYS 1,8AND 15 OF 21DAY CYCLE.??

REACTIONS (1)
  - Neoplasm malignant [None]
